FAERS Safety Report 8570402-0 (Version None)
Quarter: 2012Q3

REPORT INFORMATION
  Report Type: 
  Country: None (occurrence: None)
  Receive Date: 20120803
  Receipt Date: 20120723
  Transmission Date: 20120928
  Serious: Yes (Hospitalization, Disabling, Other)
  Sender: FDA-Public Use
  Company Number: US-009507513-1207USA011284

PATIENT

DRUGS (7)
  1. PROSTEP [Concomitant]
  2. ALLOPURINOL [Concomitant]
  3. ASPIRIN [Concomitant]
  4. BENDROFLUMETHIAZIDE [Concomitant]
     Dosage: UNK
  5. ZOCOR [Suspect]
     Dosage: 40 MG, QD
     Route: 048
  6. CYPROTERONE ACETATE [Suspect]
     Dosage: 300 MG, TID
     Route: 048
  7. ATENOLOL [Concomitant]

REACTIONS (8)
  - DRUG INTERACTION [None]
  - BLOOD URINE PRESENT [None]
  - BLOOD CREATININE INCREASED [None]
  - RHABDOMYOLYSIS [None]
  - HEPATOTOXICITY [None]
  - FATIGUE [None]
  - MUSCULAR WEAKNESS [None]
  - MALAISE [None]
